FAERS Safety Report 24706698 (Version 1)
Quarter: 2024Q4

REPORT INFORMATION
  Report Type: Spontaneous
  Country: SA (occurrence: SA)
  Receive Date: 20241206
  Receipt Date: 20241206
  Transmission Date: 20250114
  Serious: Yes (Hospitalization, Other)
  Sender: SETON PHARMACEUTICALS
  Company Number: SA-SETONPHARMA-2024SETLIT00007

PATIENT
  Age: 29 Year
  Sex: Male
  Weight: 80 kg

DRUGS (5)
  1. PREDNISOLONE [Suspect]
     Active Substance: PREDNISOLONE
     Indication: Glomerulonephritis minimal lesion
     Dates: start: 2022
  2. PREDNISOLONE [Suspect]
     Active Substance: PREDNISOLONE
  3. CALCIUM [Concomitant]
     Active Substance: CALCIUM
     Indication: Glomerulonephritis minimal lesion
  4. CHOLECALCIFEROL [Concomitant]
     Active Substance: CHOLECALCIFEROL
     Indication: Glomerulonephritis minimal lesion
  5. DESMOPRESSIN [Concomitant]
     Active Substance: DESMOPRESSIN
     Dosage: UG
     Route: 042

REACTIONS (1)
  - Hyperglycaemic hyperosmolar nonketotic syndrome [Recovered/Resolved]

NARRATIVE: CASE EVENT DATE: 20220101
